FAERS Safety Report 17747306 (Version 2)
Quarter: 2020Q2

REPORT INFORMATION
  Report Type: Spontaneous
  Country: GB (occurrence: GB)
  Receive Date: 20200505
  Receipt Date: 20200508
  Transmission Date: 20200714
  Serious: Yes (Congenital Anomaly, Other)
  Sender: FDA-Public Use
  Company Number: GB-UCBSA-2020017683

PATIENT

DRUGS (1)
  1. KEPPRA [Suspect]
     Active Substance: LEVETIRACETAM
     Indication: PRODUCT USED FOR UNKNOWN INDICATION
     Dosage: UNKNOWN DOSE
     Route: 064

REACTIONS (6)
  - Heart disease congenital [Unknown]
  - Cleft palate [Unknown]
  - Craniofacial deformity [Unknown]
  - Maternal exposure during pregnancy [Unknown]
  - Neural tube defect [Unknown]
  - Limb malformation [Unknown]
